FAERS Safety Report 8266415-9 (Version None)
Quarter: 2012Q2

REPORT INFORMATION
  Report Type: 
  Country: None (occurrence: None)
  Receive Date: 20120406
  Receipt Date: 20120329
  Transmission Date: 20120825
  Serious: Yes (Other)
  Sender: FDA-Public Use
  Company Number: DE-ALLERGAN-1204136US

PATIENT
  Age: 81 Year
  Sex: Female
  Weight: 89 kg

DRUGS (5)
  1. TEBONIN [Concomitant]
     Indication: MEMORY IMPAIRMENT
  2. FAGORUTIN RUSCUS [Concomitant]
     Indication: VENOUS INSUFFICIENCY
  3. CALCIUM CARBONATE [Concomitant]
     Indication: PRODUCT USED FOR UNKNOWN INDICATION
  4. VEIN CAPSULES [Concomitant]
     Indication: PRODUCT USED FOR UNKNOWN INDICATION
  5. ALPHAGANA? 0,2 % M/V (2MG/ML) AUGENTROPFEN [Suspect]
     Indication: GLAUCOMA
     Dosage: UNK
     Route: 047
     Dates: start: 20111201, end: 20111201

REACTIONS (4)
  - ARRHYTHMIA [None]
  - HYPOTENSION [None]
  - ATRIAL FIBRILLATION [None]
  - DRY MOUTH [None]
